FAERS Safety Report 8913796 (Version 1)
Quarter: 2012Q4

REPORT INFORMATION
  Report Type: 
  Country: US (occurrence: US)
  Receive Date: 20121119
  Receipt Date: 20121119
  Transmission Date: 20130627
  Serious: Yes (Other)
  Sender: FDA-Public Use
  Company Number: US-JNJFOC-20121105764

PATIENT
  Sex: Female
  Weight: 62.6 kg

DRUGS (1)
  1. NEOSPORIN [Suspect]
     Indication: SKIN GRAFT
     Dosage: fingertip full amount
     Route: 061

REACTIONS (2)
  - Herpes zoster [Recovered/Resolved]
  - Off label use [Unknown]
